FAERS Safety Report 20609239 (Version 1)
Quarter: 2022Q1

REPORT INFORMATION
  Report Type: Spontaneous
  Country: RU (occurrence: None)
  Receive Date: 20220317
  Receipt Date: 20220317
  Transmission Date: 20220424
  Serious: Yes (Other)
  Sender: FDA-Public Use
  Company Number: RU-ROCHE-3049194

PATIENT
  Sex: Male

DRUGS (2)
  1. VEMURAFENIB [Suspect]
     Active Substance: VEMURAFENIB
     Indication: Neoplasm malignant
     Route: 065
     Dates: start: 20210616
  2. COBIMETINIB [Suspect]
     Active Substance: COBIMETINIB
     Indication: Neoplasm malignant
     Route: 065
     Dates: start: 20210616

REACTIONS (4)
  - Hepatotoxicity [Unknown]
  - Skin toxicity [Unknown]
  - Pyrexia [Unknown]
  - Rash [Unknown]
